FAERS Safety Report 8375881-X (Version None)
Quarter: 2012Q2

REPORT INFORMATION
  Report Type: 
  Country: None (occurrence: None)
  Receive Date: 20120522
  Receipt Date: 20120517
  Transmission Date: 20120825
  Serious: No
  Sender: FDA-Public Use
  Company Number: US-BAYER-2012-047333

PATIENT
  Age: 34 Year
  Sex: Female

DRUGS (1)
  1. MIRENA [Suspect]
     Indication: CONTRACEPTION
     Dosage: 20 ?G/D, CONT
     Route: 015
     Dates: start: 20111101, end: 20120507

REACTIONS (6)
  - LIBIDO DECREASED [None]
  - BACK PAIN [None]
  - DEPRESSED MOOD [None]
  - ACNE [None]
  - DEPRESSION [None]
  - NEGATIVE THOUGHTS [None]
